FAERS Safety Report 17022445 (Version 1)
Quarter: 2019Q4

REPORT INFORMATION
  Report Type: Spontaneous
  Country: DE (occurrence: DE)
  Receive Date: 20191112
  Receipt Date: 20191112
  Transmission Date: 20200122
  Serious: Yes (Other)
  Sender: FDA-Public Use
  Company Number: DE-MYLANLABS-2019M1107124

PATIENT
  Age: 53 Year
  Sex: Male

DRUGS (10)
  1. ADENURIC [Concomitant]
     Active Substance: FEBUXOSTAT
     Dosage: 80 MILLIGRAM (SOMETIMES 1 X 80 MG)
  2. POTABA-GLENWOOD [Suspect]
     Active Substance: AMINOBENZOATE POTASSIUM
     Dosage: 24 DOSAGE FORM, QD (3000 MG (6X500 MG) FOUR TIMES A DAY)
     Route: 048
     Dates: start: 20190222, end: 20190224
  3. POTABA-GLENWOOD [Suspect]
     Active Substance: AMINOBENZOATE POTASSIUM
     Indication: PRODUCT USED FOR UNKNOWN INDICATION
     Dosage: 4 DOSAGE FORM, QD (3000 MG FOUR TIMES A DAY)
     Route: 048
     Dates: start: 20190407, end: 20190409
  4. CANDESARTAN. [Suspect]
     Active Substance: CANDESARTAN
     Indication: PRODUCT USED FOR UNKNOWN INDICATION
     Dosage: 16 MILLIGRAM, QD (IN THE MORNING)
     Dates: end: 201903
  5. POTABA-GLENWOOD [Suspect]
     Active Substance: AMINOBENZOATE POTASSIUM
     Indication: PRODUCT USED FOR UNKNOWN INDICATION
     Dosage: 500 MILLIGRAM, QD (EVERY MORNING)
     Route: 048
     Dates: start: 20181217, end: 20181220
  6. DICLOFENAC [Concomitant]
     Active Substance: DICLOFENAC
     Indication: ARTHRALGIA
     Dosage: 75 MILLIGRAM (SOMETIMES)
  7. VIANI [Concomitant]
     Active Substance: FLUTICASONE PROPIONATE\SALMETEROL XINAFOATE
     Dosage: 1 DOSAGE FORM, QD (1 X IN THE EVENING)
  8. HCT [Concomitant]
     Active Substance: HYDROCHLOROTHIAZIDE
     Dosage: 25 MILLIGRAM, QD (1 X 25 MG IN THE MORNING)
  9. POTABA-GLENWOOD [Suspect]
     Active Substance: AMINOBENZOATE POTASSIUM
     Dosage: 24 DOSAGE FORM, QD (3000 MG (6X500 MG) FOUR TIMES A DAY)
     Route: 048
     Dates: start: 20181221, end: 20190125
  10. LERCANIDIPIN OMNIAPHARM [Concomitant]
     Active Substance: LERCANIDIPINE HYDROCHLORIDE
     Dosage: 10 MILLIGRAM, QD (1 X 10 MG IN THE MORNING)

REACTIONS (4)
  - Immune system disorder [Recovering/Resolving]
  - Urticaria [Recovered/Resolved]
  - Measles [Unknown]
  - Prescribed underdose [Recovered/Resolved]

NARRATIVE: CASE EVENT DATE: 201902
